FAERS Safety Report 18445871 (Version 1)
Quarter: 2020Q4

REPORT INFORMATION
  Report Type: Spontaneous
  Country: IN (occurrence: IN)
  Receive Date: 20201030
  Receipt Date: 20201030
  Transmission Date: 20210114
  Serious: Yes (Death, Hospitalization)
  Sender: FDA-Public Use
  Company Number: IN-MYLANLABS-2020M1090977

PATIENT
  Age: 31 Year
  Sex: Male

DRUGS (1)
  1. CISPLATIN. [Suspect]
     Active Substance: CISPLATIN
     Indication: SQUAMOUS CELL CARCINOMA OF SKIN
     Dosage: 40 MILLIGRAM/SQ. METER, QW
     Route: 065

REACTIONS (7)
  - Diarrhoea [Unknown]
  - Pancytopenia [Not Recovered/Not Resolved]
  - Febrile neutropenia [Not Recovered/Not Resolved]
  - Candida infection [Unknown]
  - Neutropenic sepsis [Fatal]
  - Staphylococcal infection [Unknown]
  - Pneumonia fungal [Fatal]
